FAERS Safety Report 16630396 (Version 4)
Quarter: 2019Q4

REPORT INFORMATION
  Report Type: Spontaneous
  Country: US (occurrence: US)
  Receive Date: 20190725
  Receipt Date: 20191023
  Transmission Date: 20200122
  Serious: Yes (Death, Hospitalization)
  Sender: FDA-Public Use
  Company Number: US-BAYER-2019-137820

PATIENT
  Age: 49 Year
  Sex: Male

DRUGS (2)
  1. KOGENATE FS [Suspect]
     Active Substance: ANTIHEMOPHILIC FACTOR, HUMAN RECOMBINANT
     Indication: FACTOR VIII DEFICIENCY
     Dosage: DUE TO THE SURGERIES
  2. KOGENATE FS [Suspect]
     Active Substance: ANTIHEMOPHILIC FACTOR, HUMAN RECOMBINANT
     Indication: FACTOR VIII DEFICIENCY
     Dosage: 2087 U, PRN
     Route: 042
     Dates: start: 201709

REACTIONS (7)
  - Arthritis bacterial [Fatal]
  - Surgery [None]
  - Spinal cord abscess [Fatal]
  - Osteomyelitis [Fatal]
  - Staphylococcal bacteraemia [Fatal]
  - Paraspinal abscess [Fatal]
  - Myositis [Fatal]

NARRATIVE: CASE EVENT DATE: 20190620
